FAERS Safety Report 7249167-0 (Version None)
Quarter: 2011Q1

REPORT INFORMATION
  Report Type: 
  Country: None (occurrence: None)
  Receive Date: 20110128
  Receipt Date: 20101020
  Transmission Date: 20110831
  Serious: Yes (Life-Threatening, Hospitalization, Disabling)
  Sender: FDA-Public Use
  Company Number: US-BAYER-200937025NA

PATIENT
  Sex: Female
  Weight: 77.273 kg

DRUGS (54)
  1. YASMIN [Suspect]
     Indication: THYROID DISORDER
  2. SPIRONOLACTONE [Concomitant]
     Dosage: TWO TABLETS PER DAY
     Route: 065
     Dates: start: 20081109
  3. EFFEXOR XR [Concomitant]
     Indication: PREMENSTRUAL SYNDROME
     Dosage: PHARMACY RECORDS: DEC-2008. OTHER INDICATION: ANXIETY.
     Route: 065
     Dates: start: 20000101
  4. EFFEXOR XR [Concomitant]
     Indication: PAIN
  5. MELOXICAM [Concomitant]
  6. AMITIZA [Concomitant]
     Indication: IRRITABLE BOWEL SYNDROME
     Dosage: PHARMACY RECORDS: DEC-2008
     Route: 065
     Dates: start: 20081205
  7. PENICILLIN V POTASSIUM [Concomitant]
     Indication: PHARYNGITIS STREPTOCOCCAL
     Route: 065
  8. LORAZEPAM [Concomitant]
     Indication: ANXIETY
  9. MIRALAX [Concomitant]
     Route: 065
  10. YASMIN [Suspect]
     Indication: GOITRE
  11. WARFARIN SODIUM [Concomitant]
     Dosage: DOSING 3 MG DAILY EXCEPT THURSDAYS
     Route: 065
     Dates: start: 20090129
  12. ANTIBIOTICS [Concomitant]
  13. SPIRONOLACTONE [Concomitant]
     Indication: UNEVALUABLE EVENT
     Route: 065
     Dates: start: 20040101
  14. XANAX [Concomitant]
     Indication: IRRITABLE BOWEL SYNDROME
     Dosage: ??-DEC-2008
     Route: 065
     Dates: start: 20000101
  15. ACETAMINOPHEN W/ PROPOXYPHENE HCL [Concomitant]
     Indication: PAIN
     Dosage: PHARMACY RECORDS: DEC-2008
     Route: 065
     Dates: start: 20081219
  16. PERCOCET [Concomitant]
     Indication: PAIN
     Route: 065
  17. YAZ [Suspect]
     Indication: OVARIAN CYST
  18. LEVOXYL [Concomitant]
     Indication: PAIN
     Dosage: USED LEVOKYL OR SYNTHROID
     Route: 042
     Dates: start: 19920101, end: 20100101
  19. SYNTHROID [Concomitant]
     Indication: PAIN
     Dosage: USED LEVOKYL OR SYNTHROID
     Route: 065
     Dates: start: 19920101, end: 20100101
  20. SYNTHROID [Concomitant]
     Indication: HYPOTHYROIDISM
  21. ADVIL [Concomitant]
     Dates: start: 19990101, end: 20080101
  22. XANAX [Concomitant]
     Indication: ANXIETY
  23. BUDEPRION [Concomitant]
     Indication: PREMENSTRUAL SYNDROME
     Dosage: PHARMACY RECORDS: DEC-2008
     Route: 065
     Dates: start: 20081205, end: 20081210
  24. ESOMEPRAZOLE [Concomitant]
     Route: 042
  25. COLACE [Concomitant]
     Indication: CONSTIPATION PROPHYLAXIS
     Route: 065
  26. FLEXERIL [Concomitant]
     Dosage: PHARMACY RECORDS: DEC-2008
     Route: 065
  27. SYNTHROID [Concomitant]
  28. RESTASIS [Concomitant]
     Indication: LACRIMAL DISORDER
     Route: 065
     Dates: start: 20080730
  29. GOLYTELY [Concomitant]
  30. UNKNOWN DRUG [Concomitant]
     Indication: HEADACHE
     Route: 065
  31. EFFEXOR XR [Concomitant]
     Indication: DEPRESSION
  32. CYCLOBENZAPRINE [Concomitant]
     Indication: LACRIMAL DISORDER
     Dates: start: 20081120
  33. BUDEPRION [Concomitant]
     Indication: INITIAL INSOMNIA
  34. DILAUDID [Concomitant]
     Indication: PAIN
     Route: 065
  35. ZOLOFT [Concomitant]
     Route: 065
  36. WELLBUTRIN [Concomitant]
     Dosage: PHARMACY RECORDS: DEC-2008
     Route: 065
  37. SERTRALINE HYDROCHLORIDE [Concomitant]
     Dosage: PHARMACY RECORDS: JAN-2009
     Route: 065
  38. YASMIN [Suspect]
     Indication: ORAL CONTRACEPTION
     Dosage: FROM 2001 OR 2002 UNTIL DEC-2008, ONE PILL DAILY. PHARMACY RECORDS: DEC-2008
     Dates: end: 20081201
  39. LEVOXYL [Concomitant]
  40. DURAGESIC-50 [Concomitant]
     Indication: PAIN
     Route: 065
  41. BACTRIM [Concomitant]
     Indication: URINARY TRACT INFECTION
     Route: 065
  42. ACETAMINOPHEN AND HYDROCODONE BITARTRATE [Concomitant]
     Indication: PAIN
  43. ASPIRIN [Concomitant]
     Route: 065
  44. AMBIEN [Concomitant]
     Route: 065
  45. MERIDIA [Concomitant]
     Indication: WEIGHT DECREASED
     Dosage: 15 MG, QD
     Route: 065
     Dates: start: 20070301, end: 20090101
  46. LEXAPRO [Concomitant]
     Dosage: PHARMACY RECORDS: DEC-2008
     Route: 065
  47. WARFARIN SODIUM [Concomitant]
     Route: 065
     Dates: start: 20081227
  48. PROTONIX [Concomitant]
     Indication: BACK PAIN
     Dosage: PHARMACY RECORDS: DEC-2008
     Route: 065
     Dates: start: 20081208
  49. MELOXICAM [Concomitant]
     Indication: INTERVERTEBRAL DISC PROTRUSION
     Dosage: PHARMACY RECORDS: DEC-2008
     Route: 065
     Dates: start: 20081120
  50. NASONEX [Concomitant]
     Dosage: PHARMACY RECORDS: 2007, DEC-2008
     Route: 065
  51. MOBIC [Concomitant]
     Dosage: PHARMACY RECORDS: DEC-2008
     Route: 065
  52. UNKNOWN DRUG [Concomitant]
     Indication: CONTRACEPTION
  53. CELEBREX [Concomitant]
  54. PROTONIX [Concomitant]
     Indication: GASTRITIS

REACTIONS (32)
  - PAIN [None]
  - DEEP VEIN THROMBOSIS [None]
  - DISSEMINATED INTRAVASCULAR COAGULATION [None]
  - AGITATION [None]
  - ANXIETY [None]
  - PAIN IN EXTREMITY [None]
  - MOBILITY DECREASED [None]
  - IMPAIRED DRIVING ABILITY [None]
  - DEHYDRATION [None]
  - PLATELET COUNT DECREASED [None]
  - PELVIC HAEMATOMA [None]
  - AFFECTIVE DISORDER [None]
  - TENSION [None]
  - FEAR [None]
  - SKIN WARM [None]
  - SKIN TURGOR DECREASED [None]
  - POSTOPERATIVE ILEUS [None]
  - CONVERSION DISORDER [None]
  - POST THROMBOTIC SYNDROME [None]
  - TEARFULNESS [None]
  - INAPPROPRIATE AFFECT [None]
  - SKIN DISCOLOURATION [None]
  - VARICOSE VEIN [None]
  - RETROPERITONEAL HAEMORRHAGE [None]
  - SWELLING [None]
  - SKIN ATROPHY [None]
  - AFFECT LABILITY [None]
  - PULMONARY EMBOLISM [None]
  - PELVIC VENOUS THROMBOSIS [None]
  - PLEURAL EFFUSION [None]
  - CONFUSIONAL STATE [None]
  - DEPRESSED MOOD [None]
